FAERS Safety Report 4814946-3 (Version None)
Quarter: 2005Q4

REPORT INFORMATION
  Report Type: 
  Country: None (occurrence: None)
  Receive Date: 20051026
  Receipt Date: 20051013
  Transmission Date: 20060501
  Serious: Yes (Other)
  Sender: FDA-Public Use
  Company Number: 2005142360

PATIENT
  Age: 61 Year
  Sex: Female

DRUGS (4)
  1. ATORVASTATIN CALCIUM [Suspect]
     Indication: ILL-DEFINED DISORDER
     Dosage: (20 MG)
  2. SIMVASTATIN [Suspect]
     Indication: ILL-DEFINED DISORDER
     Dosage: (20 MG)
  3. THYROXINE (LEVOTHYROXINE) [Concomitant]
  4. DOSULEPIN (DOSULEPIN) [Concomitant]

REACTIONS (1)
  - CONFUSIONAL STATE [None]
